FAERS Safety Report 5962006-0 (Version None)
Quarter: 2008Q4

REPORT INFORMATION
  Report Type: 
  Country: None (occurrence: None)
  Receive Date: 20081121
  Receipt Date: 20081110
  Transmission Date: 20090506
  Serious: Yes (Hospitalization, Other)
  Sender: FDA-Public Use
  Company Number: PHBS2008AE06314

PATIENT
  Age: 11 Year
  Sex: Male

DRUGS (9)
  1. DEFEROXAMINE MESYLATE [Suspect]
     Indication: THALASSAEMIA BETA
     Route: 058
  2. FOLIC ACID [Concomitant]
     Indication: PROPHYLAXIS
  3. PENICILLIN [Concomitant]
     Indication: PROPHYLAXIS
  4. DIGOXIN [Concomitant]
     Indication: CONGESTIVE CARDIOMYOPATHY
  5. FUROSEMIDE [Concomitant]
     Indication: CONGESTIVE CARDIOMYOPATHY
  6. LISINOPRIL [Concomitant]
     Indication: CONGESTIVE CARDIOMYOPATHY
  7. CARVEDILOL [Concomitant]
     Indication: CONGESTIVE CARDIOMYOPATHY
  8. AMIODARONE HCL [Concomitant]
  9. WARFARIN SODIUM [Concomitant]

REACTIONS (9)
  - ARRHYTHMIA [None]
  - ATRIAL FLUTTER [None]
  - CARDIAC FAILURE CONGESTIVE [None]
  - CONGESTIVE CARDIOMYOPATHY [None]
  - EJECTION FRACTION DECREASED [None]
  - SERUM FERRITIN INCREASED [None]
  - TREATMENT NONCOMPLIANCE [None]
  - TYPE 1 DIABETES MELLITUS [None]
  - VENTRICULAR INTERNAL DIAMETER ABNORMAL [None]
